FAERS Safety Report 11568316 (Version 2)
Quarter: 2015Q4

REPORT INFORMATION
  Report Type: Spontaneous
  Country: US (occurrence: US)
  Receive Date: 20150916
  Receipt Date: 20151027
  Transmission Date: 20160304
  Serious: No
  Sender: FDA-Public Use
  Company Number: US-ELI_LILLY_AND_COMPANY-US200908003444

PATIENT
  Sex: Female

DRUGS (1)
  1. FORTEO [Suspect]
     Active Substance: TERIPARATIDE

REACTIONS (9)
  - Injection site pain [Unknown]
  - Arthralgia [Unknown]
  - Migraine [Unknown]
  - Arthritis [Unknown]
  - Foot fracture [Unknown]
  - Pain [Unknown]
  - Drug dose omission [Recovered/Resolved]
  - Headache [Unknown]
  - Spinal pain [Unknown]

NARRATIVE: CASE EVENT DATE: 20090813
